FAERS Safety Report 5623993-3 (Version None)
Quarter: 2008Q1

REPORT INFORMATION
  Report Type: 
  Country: None (occurrence: None)
  Receive Date: 20080213
  Receipt Date: 20080205
  Transmission Date: 20080703
  Serious: Yes (Hospitalization)
  Sender: FDA-Public Use
  Company Number: JP-WYE-H02472608

PATIENT
  Age: 72 Year
  Sex: Female

DRUGS (2)
  1. TRIHEXYPHENIDYL HCL [Suspect]
     Indication: TREMOR
     Dosage: 4 MG FREQUENCY UNSPECIFIED
  2. LEVODOPA [Concomitant]
     Indication: GAIT DISTURBANCE

REACTIONS (2)
  - HALLUCINATION [None]
  - PARANOIA [None]
